FAERS Safety Report 7643603-3 (Version None)
Quarter: 2011Q3

REPORT INFORMATION
  Report Type: 
  Country: None (occurrence: None)
  Receive Date: 20110729
  Receipt Date: 20110721
  Transmission Date: 20111222
  Serious: Yes (Hospitalization, Other)
  Sender: FDA-Public Use
  Company Number: US-ABBOTT-11P-163-0725737-00

PATIENT
  Sex: Female
  Weight: 130.3 kg

DRUGS (15)
  1. PROZAC [Concomitant]
     Indication: PRODUCT USED FOR UNKNOWN INDICATION
     Route: 048
  2. INSULIN [Concomitant]
     Indication: DIABETES MELLITUS
  3. DILAUDID [Concomitant]
     Indication: PRODUCT USED FOR UNKNOWN INDICATION
  4. HUMIRA [Suspect]
     Indication: PSORIATIC ARTHROPATHY
     Dosage: LOADING DOSE 4 INJECTIONS
     Route: 058
     Dates: start: 20110401, end: 20110401
  5. HUMIRA [Suspect]
     Dates: start: 20110501
  6. POTASSIUM [Concomitant]
     Indication: PRODUCT USED FOR UNKNOWN INDICATION
  7. METHOTREXATE [Concomitant]
     Indication: PRODUCT USED FOR UNKNOWN INDICATION
  8. MORPHINE [Concomitant]
     Indication: FIBROMYALGIA
     Dosage: IR
  9. LANTUS [Concomitant]
     Indication: DIABETES MELLITUS
  10. VICODIN [Concomitant]
     Indication: PRODUCT USED FOR UNKNOWN INDICATION
  11. CLOBETASOL PROPIONATE [Concomitant]
     Indication: PSORIASIS
     Route: 061
  12. TRIAMCINOLONE [Concomitant]
     Indication: PSORIASIS
     Route: 061
  13. HUMIRA [Suspect]
     Indication: PSORIASIS
     Route: 058
     Dates: start: 20080101, end: 20090101
  14. HUMIRA [Suspect]
     Indication: RHEUMATOID ARTHRITIS
     Route: 058
     Dates: start: 20090101
  15. LISINOPRIL [Concomitant]
     Indication: BLOOD PRESSURE
     Route: 048

REACTIONS (15)
  - DRUG DOSE OMISSION [None]
  - RASH [None]
  - NASAL CONGESTION [None]
  - PSORIASIS [None]
  - GAIT DISTURBANCE [None]
  - RHEUMATOID ARTHRITIS [None]
  - RESPIRATORY TRACT CONGESTION [None]
  - SKIN INFECTION [None]
  - MALAISE [None]
  - COUGH [None]
  - FATIGUE [None]
  - DRY SKIN [None]
  - FUNGAL INFECTION [None]
  - OEDEMA PERIPHERAL [None]
  - ERYTHEMA [None]
